FAERS Safety Report 9081845 (Version 1)
Quarter: 2013Q1

REPORT INFORMATION
  Report Type: Spontaneous
  Country: US (occurrence: US)
  Receive Date: 20130218
  Receipt Date: 20130218
  Transmission Date: 20140127
  Serious: No
  Sender: FDA-Public Use
  Company Number: US-PFIZER INC-2013060450

PATIENT
  Sex: Female

DRUGS (1)
  1. PROPANOLOL HCL [Suspect]
     Indication: HYPERTENSION
     Dosage: 60 MG, ONE CAPSULE DAILY
     Route: 048

REACTIONS (2)
  - Dizziness [Recovered/Resolved]
  - Visual impairment [Recovered/Resolved]
